FAERS Safety Report 9127165 (Version 1)
Quarter: 2013Q1

REPORT INFORMATION
  Report Type: Spontaneous
  Country: CA (occurrence: CA)
  Receive Date: 20130122
  Receipt Date: 20130122
  Transmission Date: 20140127
  Serious: Yes (Other)
  Sender: FDA-Public Use
  Company Number: CA-JNJFOC-20120603032

PATIENT
  Age: 22 Year
  Sex: Female
  Weight: 75 kg

DRUGS (3)
  1. REMICADE [Suspect]
     Indication: CROHN^S DISEASE
     Dosage: UNTIL 30 WEEKS GESTATION
     Route: 042
     Dates: start: 20090618, end: 20120918
  2. REMICADE [Suspect]
     Indication: CROHN^S DISEASE
     Dosage: POST DELIVERY
     Route: 042
     Dates: start: 20121217
  3. REMICADE [Suspect]
     Indication: CROHN^S DISEASE
     Route: 042
     Dates: start: 200901

REACTIONS (3)
  - Arrested labour [Recovered/Resolved]
  - Crohn^s disease [Unknown]
  - Exposure during pregnancy [Recovered/Resolved]
